FAERS Safety Report 11662907 (Version 1)
Quarter: 2015Q4

REPORT INFORMATION
  Report Type: Spontaneous
  Country: US (occurrence: US)
  Receive Date: 20151027
  Receipt Date: 20151027
  Transmission Date: 20160304
  Serious: No
  Sender: FDA-Public Use
  Company Number: US-MEDA-2014040066

PATIENT
  Sex: Female

DRUGS (1)
  1. DYMISTA [Suspect]
     Active Substance: AZELASTINE HYDROCHLORIDE\FLUTICASONE PROPIONATE
     Dates: start: 20140325, end: 201403

REACTIONS (9)
  - Dyspnoea [Unknown]
  - Dizziness [Unknown]
  - Paradoxical drug reaction [Unknown]
  - Nasal congestion [Unknown]
  - Asthenia [Unknown]
  - Influenza like illness [Unknown]
  - Hypersensitivity [Unknown]
  - Myalgia [Unknown]
  - Throat irritation [Unknown]

NARRATIVE: CASE EVENT DATE: 201403
